FAERS Safety Report 12434152 (Version 2)
Quarter: 2016Q2

REPORT INFORMATION
  Report Type: Report from Study
  Country: BR (occurrence: BR)
  Receive Date: 20160603
  Receipt Date: 20160607
  Transmission Date: 20160815
  Serious: Yes (Death)
  Sender: FDA-Public Use
  Company Number: PHHY2016BR076762

PATIENT
  Age: 70 Year
  Sex: Female
  Weight: 70 kg

DRUGS (4)
  1. CALCIUM [Concomitant]
     Active Substance: CALCIUM
     Indication: PRODUCT USED FOR UNKNOWN INDICATION
     Dosage: UNK
     Route: 065
  2. VITAMIN D [Concomitant]
     Active Substance: CHOLECALCIFEROL
     Indication: PRODUCT USED FOR UNKNOWN INDICATION
     Dosage: UNK
     Route: 065
  3. ACLASTA [Suspect]
     Active Substance: ZOLEDRONIC ACID
     Indication: OSTEOPOROSIS
     Dosage: 5 MG, Q12MO
     Route: 042
     Dates: start: 20131101
  4. ACLASTA [Suspect]
     Active Substance: ZOLEDRONIC ACID
     Dosage: 5 MG, Q12MO
     Route: 042
     Dates: start: 20151216

REACTIONS (6)
  - Fall [Unknown]
  - Myocardial necrosis [Fatal]
  - Malaise [Unknown]
  - Fracture [Fatal]
  - Pulmonary embolism [Fatal]
  - Cardiogenic shock [Fatal]

NARRATIVE: CASE EVENT DATE: 20160512
